FAERS Safety Report 9249012 (Version 1)
Quarter: 2013Q1

REPORT INFORMATION
  Report Type: Spontaneous
  Country: US (occurrence: None)
  Receive Date: 20130305
  Receipt Date: 20130305
  Transmission Date: 20140127
  Serious: Yes (Hospitalization)
  Sender: FDA-Public Use
  Company Number: 163-21880-12060331

PATIENT
  Age: 73 Year
  Sex: Male

DRUGS (9)
  1. REVLIMID [Suspect]
     Indication: PLASMA CELL MYELOMA
     Dosage: 15 MG, X 21 DAYS, PO
     Route: 048
     Dates: start: 20120224
  2. FLOMAX [Concomitant]
  3. NOVOLOG (INSULIN ASPART) [Concomitant]
  4. LOSARTAN (LOSARTAN) [Concomitant]
  5. POTASSIUM (POTASSIUM) [Concomitant]
  6. SIMVASTATIN (SIMVASTATIN) [Concomitant]
  7. TOPROL XL (METOPROLOL SUCCINATE) (100 MILLIGRAM) (METOPROLOL SUCCINATE) [Concomitant]
  8. WARFARIN SODIUM (WARFARIN SODIUM) [Concomitant]
  9. FUROSEMIDE (FUROSEMIDE) [Concomitant]

REACTIONS (2)
  - Bronchitis [None]
  - Full blood count decreased [None]
